FAERS Safety Report 15619907 (Version 2)
Quarter: 2018Q4

REPORT INFORMATION
  Report Type: Report from Study
  Country: US (occurrence: US)
  Receive Date: 20181115
  Receipt Date: 20181206
  Transmission Date: 20190205
  Serious: Yes (Hospitalization, Other)
  Sender: FDA-Public Use
  Company Number: US-GILEAD-2018-0371180

PATIENT
  Age: 88 Year
  Sex: Female

DRUGS (24)
  1. FUROSEMIDE. [Concomitant]
     Active Substance: FUROSEMIDE
  2. SPIRIVA [Concomitant]
     Active Substance: TIOTROPIUM BROMIDE MONOHYDRATE
  3. ULORIC [Concomitant]
     Active Substance: FEBUXOSTAT
  4. FAMOTIDINE. [Concomitant]
     Active Substance: FAMOTIDINE
  5. MOMETASONE [Concomitant]
     Active Substance: MOMETASONE
  6. SILDENAFIL. [Concomitant]
     Active Substance: SILDENAFIL
  7. POTASSIUM CHLORIDE. [Concomitant]
     Active Substance: POTASSIUM CHLORIDE
  8. KETOCONAZOLE. [Concomitant]
     Active Substance: KETOCONAZOLE
  9. NU-IRON [Concomitant]
     Active Substance: FERRIC POLYSACCHARIDE COMPLEX
  10. ONDANSETRON [Concomitant]
     Active Substance: ONDANSETRON
  11. TOBRAMYCIN. [Concomitant]
     Active Substance: TOBRAMYCIN
  12. COLCHICINE. [Concomitant]
     Active Substance: COLCHICINE
  13. SYMBICORT [Concomitant]
     Active Substance: BUDESONIDE\FORMOTEROL FUMARATE DIHYDRATE
  14. DAKINS FULL [Concomitant]
     Active Substance: SODIUM HYPOCHLORITE
  15. CEFUROXIME. [Concomitant]
     Active Substance: CEFUROXIME
  16. AMBRISENTAN [Suspect]
     Active Substance: AMBRISENTAN
     Indication: PULMONARY ARTERIAL HYPERTENSION
     Dosage: 5 MG, QD
     Route: 065
     Dates: start: 20150429
  17. ATENOLOL. [Concomitant]
     Active Substance: ATENOLOL
  18. LEVOTHYROXIN [Concomitant]
     Active Substance: LEVOTHYROXINE
  19. WARFARIN [Concomitant]
     Active Substance: WARFARIN
  20. GENTAMICIN. [Concomitant]
     Active Substance: GENTAMICIN
  21. TRAMADOL HCL [Concomitant]
     Active Substance: TRAMADOL HYDROCHLORIDE
  22. ALLOPURINOL. [Concomitant]
     Active Substance: ALLOPURINOL
  23. CARTIA XT [Concomitant]
     Active Substance: DILTIAZEM HYDROCHLORIDE
  24. DILTIAZEM. [Concomitant]
     Active Substance: DILTIAZEM

REACTIONS (5)
  - Fall [Unknown]
  - Limb injury [Unknown]
  - Product use issue [Unknown]
  - Product dose omission [Unknown]
  - Hip fracture [Unknown]

NARRATIVE: CASE EVENT DATE: 201809
